APPROVED DRUG PRODUCT: COMBOGESIC
Active Ingredient: ACETAMINOPHEN; IBUPROFEN
Strength: 325MG;97.5MG
Dosage Form/Route: TABLET;ORAL
Application: N209471 | Product #001
Applicant: AFT PHARMACEUTICALS US INC
Approved: Mar 1, 2023 | RLD: Yes | RS: Yes | Type: RX

PATENTS:
Patent 11534407 | Expires: Feb 27, 2039
Patent 11197830 | Expires: Feb 27, 2039

EXCLUSIVITY:
Code: NP | Date: Mar 1, 2026